FAERS Safety Report 4993129-0 (Version None)
Quarter: 2006Q1

REPORT INFORMATION
  Report Type: 
  Country: None (occurrence: None)
  Receive Date: 20060313
  Receipt Date: 20051117
  Transmission Date: 20060701
  Serious: No
  Sender: FDA-Public Use
  Company Number: 2005-BP-18930BP

PATIENT
  Age: 84 Year
  Sex: Female

DRUGS (10)
  1. SPIRIVA [Suspect]
     Indication: CHRONIC OBSTRUCTIVE PULMONARY DISEASE
     Dosage: 18 MCG (18 MCG), IH
     Route: 055
     Dates: start: 20040601
  2. XOPENEX [Concomitant]
  3. ALBUTEROL SULFATE AUTOHALER [Concomitant]
  4. THEOPHYLLINE [Concomitant]
  5. BACTRIM [Concomitant]
  6. PREDNISONE TAB [Concomitant]
  7. POTASSIUM [Concomitant]
  8. MAGNESIUM SULFATE [Concomitant]
  9. CALCIUM GLUCONATE [Concomitant]
  10. SPIRIVA [Suspect]
     Indication: EMPHYSEMA

REACTIONS (2)
  - ASTHENIA [None]
  - DYSPNOEA [None]
